FAERS Safety Report 19794860 (Version 1)
Quarter: 2021Q3

REPORT INFORMATION
  Report Type: Report from Study
  Country: US (occurrence: US)
  Receive Date: 20210907
  Receipt Date: 20210907
  Transmission Date: 20211014
  Serious: No
  Sender: FDA-Public Use
  Company Number: NVSC2021US202493

PATIENT
  Age: 55 Year
  Sex: Female
  Weight: 86.18 kg

DRUGS (1)
  1. KESIMPTA [Suspect]
     Active Substance: OFATUMUMAB
     Indication: PRODUCT USED FOR UNKNOWN INDICATION
     Dosage: 20 MG QMO, BENEATH THE SKIN USUALLY VIA INJECTION
     Route: 058
     Dates: start: 20210730

REACTIONS (5)
  - Pain [Unknown]
  - Chills [Unknown]
  - Oropharyngeal pain [Unknown]
  - Respiratory symptom [Unknown]
  - Pyrexia [Unknown]

NARRATIVE: CASE EVENT DATE: 20210901
